FAERS Safety Report 7120663-X (Version None)
Quarter: 2010Q4

REPORT INFORMATION
  Report Type: 
  Country: None (occurrence: None)
  Receive Date: 20101124
  Receipt Date: 20100611
  Transmission Date: 20110411
  Serious: Yes (Hospitalization, Other)
  Sender: FDA-Public Use
  Company Number: US-BAYER-201010662NA

PATIENT
  Age: 32 Year
  Sex: Female
  Weight: 91 kg

DRUGS (9)
  1. YASMIN [Suspect]
     Indication: CONTRACEPTION
     Route: 048
     Dates: start: 20040101, end: 20040101
  2. YAZ [Suspect]
     Indication: CONTRACEPTION
     Route: 048
     Dates: start: 20070101, end: 20080101
  3. TIZANIDINE HCL [Concomitant]
     Route: 065
  4. LORTAB [Concomitant]
     Dosage: 7.5
     Route: 065
  5. TRAMADOL HCL [Concomitant]
     Route: 065
  6. SODIUM [Concomitant]
     Route: 065
  7. TESSALON [Concomitant]
     Route: 065
  8. ACETAMINOPHEN AND HYDROCODONE BITARTRATE [Concomitant]
     Route: 065
  9. ATIVAN [Concomitant]
     Route: 065

REACTIONS (18)
  - CHEST DISCOMFORT [None]
  - CHEST PAIN [None]
  - DEEP VEIN THROMBOSIS [None]
  - DIZZINESS EXERTIONAL [None]
  - DYSPNOEA [None]
  - EPISTAXIS [None]
  - ERYTHEMA [None]
  - FALL [None]
  - FEELING HOT [None]
  - HYPERVENTILATION [None]
  - LIMB DISCOMFORT [None]
  - OEDEMA PERIPHERAL [None]
  - PAIN IN EXTREMITY [None]
  - PARAESTHESIA [None]
  - POST THROMBOTIC SYNDROME [None]
  - PULMONARY EMBOLISM [None]
  - RESPIRATORY DISTRESS [None]
  - TENDERNESS [None]
